FAERS Safety Report 21137693 (Version 1)
Quarter: 2022Q3

REPORT INFORMATION
  Report Type: Spontaneous
  Country: US (occurrence: US)
  Receive Date: 20220727
  Receipt Date: 20220727
  Transmission Date: 20221027
  Serious: No
  Sender: FDA-Public Use
  Company Number: US-VELOXIS PHARMACEUTICALS-2021VELUS-000864

PATIENT

DRUGS (6)
  1. ENVARSUS XR [Suspect]
     Active Substance: TACROLIMUS
     Indication: Product used for unknown indication
     Dosage: 0.75 MILLIGRAM
  2. ENVARSUS XR [Suspect]
     Active Substance: TACROLIMUS
     Dosage: 1 MILLIGRAM
  3. ENVARSUS XR [Suspect]
     Active Substance: TACROLIMUS
     Dosage: 4 MILLIGRAM
  4. ENVARSUS XR [Suspect]
     Active Substance: TACROLIMUS
     Dosage: 0.75 MILLIGRAM
  5. ENVARSUS XR [Suspect]
     Active Substance: TACROLIMUS
     Dosage: 1 MILLIGRAM
  6. ENVARSUS XR [Suspect]
     Active Substance: TACROLIMUS
     Dosage: 4 MILLIGRAM

REACTIONS (1)
  - Immunosuppressant drug level abnormal [Unknown]
